FAERS Safety Report 9741237 (Version 2)
Quarter: 2014Q1

REPORT INFORMATION
  Report Type: Spontaneous
  Country: US (occurrence: US)
  Receive Date: 20131209
  Receipt Date: 20140113
  Transmission Date: 20141002
  Serious: No
  Sender: FDA-Public Use
  Company Number: US-BIOGENIDEC-2013BI098563

PATIENT
  Age: 60 Year
  Sex: Female

DRUGS (1)
  1. TECFIDERA [Suspect]
     Indication: MULTIPLE SCLEROSIS
     Route: 048
     Dates: start: 20130711

REACTIONS (7)
  - Herpes zoster [Unknown]
  - Dyspepsia [Unknown]
  - Syncope [Unknown]
  - Gastrooesophageal reflux disease [Recovered/Resolved]
  - Pneumonia [Unknown]
  - Cystitis [Unknown]
  - Cough [Unknown]
